FAERS Safety Report 17288631 (Version 1)
Quarter: 2020Q1

REPORT INFORMATION
  Report Type: Spontaneous
  Country: US (occurrence: US)
  Receive Date: 20191231
  Receipt Date: 20191231
  Transmission Date: 20200409
  Serious: Yes (Hospitalization)
  Sender: FDA-Public Use
  Company Number: None

PATIENT
  Age: 61 Year
  Sex: Male

DRUGS (2)
  1. CAPECITABINE 500MG TAB [Suspect]
     Active Substance: CAPECITABINE
     Indication: RECTAL CANCER
     Dosage: ?          OTHER FREQUENCY:AM DAILY FOR 2 WKS;?
     Route: 048
     Dates: start: 20191010
  2. CAPECITABINE 500MG TAB [Suspect]
     Active Substance: CAPECITABINE
     Dosage: ?          OTHER FREQUENCY:PM;?

REACTIONS (2)
  - Gastrointestinal inflammation [None]
  - Sepsis [None]

NARRATIVE: CASE EVENT DATE: 201911
